FAERS Safety Report 16631402 (Version 1)
Quarter: 2019Q3

REPORT INFORMATION
  Report Type: Spontaneous
  Country: PL (occurrence: PL)
  Receive Date: 20190725
  Receipt Date: 20190725
  Transmission Date: 20191004
  Serious: Yes (Other)
  Sender: FDA-Public Use
  Company Number: PL-PFIZER INC-2019310076

PATIENT
  Age: 69 Year
  Sex: Male
  Weight: 79 kg

DRUGS (32)
  1. EUTHYROX N [Concomitant]
     Active Substance: LEVOTHYROXINE SODIUM
     Dosage: UNK
  2. XARTAN [Concomitant]
     Active Substance: LOSARTAN POTASSIUM
     Dosage: UNK
  3. METOCLOPRAMID [Concomitant]
     Active Substance: METOCLOPRAMIDE
     Dosage: 10 MG, UNK
     Route: 048
  4. LACIDOFIL [Concomitant]
     Active Substance: LACTOBACILLUS ACIDOPHILUS\LACTOBACILLUS RHAMNOSUS
     Dosage: UNK
  5. BISORATIO [Concomitant]
     Dosage: UNK
  6. CHAMOMILE [Concomitant]
     Active Substance: CHAMOMILE
     Dosage: UNK, 2X/DAY
  7. KALIPOZ [Concomitant]
     Active Substance: POTASSIUM CHLORIDE
     Dosage: UNK
     Route: 048
  8. ALFADIOL [Concomitant]
     Active Substance: ALFACALCIDOL
     Dosage: UNK
  9. EUTHYROX N [Concomitant]
     Active Substance: LEVOTHYROXINE SODIUM
     Dosage: UNK
  10. CALPEROS [Concomitant]
     Active Substance: CALCIUM CARBONATE
     Dosage: UNK
  11. AMLOZEK [Concomitant]
     Active Substance: AMLODIPINE BESYLATE
     Dosage: 40 MG, UNK
  12. A + D OINTMENT [Concomitant]
     Dosage: UNK, 2X/DAY
  13. FENTANYL ACTAVIS [Concomitant]
     Dosage: UNK
     Route: 048
  14. SEVREDOL [Concomitant]
     Active Substance: MORPHINE
     Dosage: 1 DF, AS NEEDED
     Route: 048
  15. SUTENT [Suspect]
     Active Substance: SUNITINIB MALATE
     Indication: RENAL CANCER
     Dosage: 50 MG, UNK
     Route: 048
     Dates: start: 20130514
  16. MYDOCALM FORTE [Concomitant]
     Dosage: 150 MG, UNK
  17. LOKREN [Concomitant]
     Active Substance: BETAXOLOL HYDROCHLORIDE
     Dosage: UNK
  18. PAMIDRONATE [Concomitant]
     Active Substance: PAMIDRONATE DISODIUM
     Dosage: UNK
     Route: 042
  19. FUROSEMID [Concomitant]
     Active Substance: FUROSEMIDE
     Dosage: 40 MG, 1X/DAY
  20. CALCIUM [Concomitant]
     Active Substance: CALCIUM
     Dosage: UNK
  21. MILURIT [Concomitant]
     Active Substance: ALLOPURINOL
     Dosage: 100 MG, 1X/DAY
  22. EUTHYROX N [Concomitant]
     Active Substance: LEVOTHYROXINE SODIUM
     Dosage: UNK
  23. IPP [PANTOPRAZOLE SODIUM] [Concomitant]
     Active Substance: PANTOPRAZOLE SODIUM
     Dosage: 40 MG, 1X/DAY
     Route: 048
  24. PAMIDRONAT MEDAC [Concomitant]
     Dosage: UNK
     Route: 042
  25. EUTHYROX N [Concomitant]
     Active Substance: LEVOTHYROXINE SODIUM
     Dosage: UNK
  26. DUROGESIC [Concomitant]
     Active Substance: FENTANYL
     Dosage: UNK
  27. BONEFOS [Concomitant]
     Active Substance: CLODRONATE DISODIUM
     Dosage: UNK
  28. ATOSSA [Concomitant]
     Dosage: UNK
  29. IBUPROM [Concomitant]
     Active Substance: IBUPROFEN
     Dosage: 200 MG, UNK
     Route: 048
  30. DIURESIN [Concomitant]
     Active Substance: INDAPAMIDE
     Dosage: UNK
  31. KLARMIN [Concomitant]
     Dosage: 250 MG, 1X/DAY
  32. COLCHICUM DISPERT [Concomitant]
     Dosage: UNK

REACTIONS (28)
  - Decreased appetite [Recovered/Resolved]
  - Abdominal pain upper [Recovered/Resolved]
  - Mucosal inflammation [Recovered/Resolved]
  - Hypertension [Recovered/Resolved]
  - Renal failure [Recovered/Resolved]
  - Back pain [Recovered/Resolved]
  - Swelling of eyelid [Recovered/Resolved]
  - Thrombocytopenia [Recovered/Resolved]
  - Neutropenia [Recovered/Resolved]
  - Nausea [Recovered/Resolved]
  - Hypothyroidism [Recovered/Resolved]
  - Constipation [Recovered/Resolved]
  - Joint swelling [Recovered/Resolved]
  - Palmar-plantar erythrodysaesthesia syndrome [Recovered/Resolved]
  - Dyspepsia [Recovered/Resolved]
  - Oedema [Recovered/Resolved]
  - Gout [Recovered/Resolved]
  - Arthralgia [Recovered/Resolved]
  - Taste disorder [Recovered/Resolved]
  - Dehydration [Recovered/Resolved]
  - Oedema peripheral [Recovered/Resolved]
  - Blister [Recovered/Resolved]
  - Leukopenia [Recovered/Resolved]
  - Stomatitis [Recovered/Resolved]
  - Diarrhoea [Recovered/Resolved]
  - Myalgia [Recovered/Resolved]
  - Lymphopenia [Recovered/Resolved]
  - Anaemia [Recovered/Resolved]

NARRATIVE: CASE EVENT DATE: 20130514
